FAERS Safety Report 5480724-8 (Version None)
Quarter: 2007Q4

REPORT INFORMATION
  Report Type: 
  Country: None (occurrence: None)
  Receive Date: 20071009
  Receipt Date: 20070927
  Transmission Date: 20080405
  Serious: Yes (Death, Other)
  Sender: FDA-Public Use
  Company Number: JP-SANOFI-SYNTHELABO-A01200710469

PATIENT
  Age: 32 Year
  Sex: Male
  Weight: 93 kg

DRUGS (13)
  1. OXYCONTIN [Concomitant]
     Dosage: 20 MG
     Route: 048
     Dates: start: 20070903, end: 20070907
  2. DECADRON [Concomitant]
     Dosage: 12 MG
     Route: 041
     Dates: start: 20070903, end: 20070903
  3. KYTRIL [Concomitant]
     Dosage: 3 MG
     Route: 041
     Dates: start: 20070903, end: 20070903
  4. CYTOTEC [Concomitant]
     Dosage: 200 MCG
     Route: 048
     Dates: start: 20070528, end: 20070907
  5. MUCOSTA [Concomitant]
     Dosage: 100 MG
     Route: 048
     Dates: start: 20070528, end: 20070907
  6. FERROMIA [Concomitant]
     Dosage: 100 MG
     Route: 048
     Dates: start: 20070528, end: 20070907
  7. LANSOPRAZOLE [Concomitant]
     Dosage: 15 MG
     Route: 048
     Dates: start: 20070525, end: 20070907
  8. FLUOROURACIL [Suspect]
     Dosage: UNK
     Route: 040
     Dates: start: 20070903, end: 20070903
  9. FLUOROURACIL [Suspect]
     Route: 041
     Dates: start: 20070903, end: 20070904
  10. BEVACIZUMAB [Suspect]
     Dosage: 5 MG/KG
     Route: 041
     Dates: start: 20070903, end: 20070903
  11. ELPLAT [Suspect]
     Indication: LARGE INTESTINE CARCINOMA
     Route: 041
     Dates: start: 20070903, end: 20070903
  12. HORIZON [Concomitant]
     Indication: RESTLESSNESS
     Dates: start: 20070907, end: 20070907
  13. ISOVORIN [Suspect]
     Route: 041
     Dates: start: 20070903, end: 20070903

REACTIONS (2)
  - EOSINOPHILIC PNEUMONIA [None]
  - PULMONARY EMBOLISM [None]
